FAERS Safety Report 5028748-9 (Version None)
Quarter: 2006Q2

REPORT INFORMATION
  Report Type: 
  Country: None (occurrence: None)
  Receive Date: 20060619
  Receipt Date: 20060428
  Transmission Date: 20061013
  Serious: No
  Sender: FDA-Public Use
  Company Number: US-BRISTOL-MYERS SQUIBB COMPANY-13360458

PATIENT
  Sex: Male
  Weight: 63 kg

DRUGS (6)
  1. BARACLUDE [Suspect]
     Indication: HEPATITIS B
     Route: 048
     Dates: start: 20060405
  2. ATACAND [Concomitant]
  3. REMERON [Concomitant]
  4. MILK THISTLE [Concomitant]
  5. CENTRUM SILVER [Concomitant]
  6. CALCIUM CITRATE [Concomitant]

REACTIONS (5)
  - CHROMATURIA [None]
  - FATIGUE [None]
  - NOCTURIA [None]
  - SOMNOLENCE [None]
  - THIRST [None]
